FAERS Safety Report 7989010-5 (Version None)
Quarter: 2011Q4

REPORT INFORMATION
  Report Type: 
  Country: None (occurrence: None)
  Receive Date: 20111219
  Receipt Date: 20111215
  Transmission Date: 20120403
  Serious: Yes (Hospitalization, Other)
  Sender: FDA-Public Use
  Company Number: CA-ABBOTT-09P-028-0587205-00

PATIENT
  Sex: Male
  Weight: 98.064 kg

DRUGS (1)
  1. LUPRON DEPOT [Suspect]
     Indication: PROSTATE CANCER
     Dates: start: 20090409

REACTIONS (7)
  - HEMIPARESIS [None]
  - HEADACHE [None]
  - CEREBROVASCULAR ACCIDENT [None]
  - MUSCULAR WEAKNESS [None]
  - JOINT INSTABILITY [None]
  - FATIGUE [None]
  - DIZZINESS [None]
